FAERS Safety Report 9203925 (Version 1)
Quarter: 2013Q1

REPORT INFORMATION
  Report Type: Spontaneous
  Country: US (occurrence: None)
  Receive Date: 20120709
  Receipt Date: 20120709
  Transmission Date: 20140127
  Serious: Yes (Other)
  Sender: FDA-Public Use
  Company Number: PHEH2011US011135

PATIENT
  Age: 72 Year
  Sex: Female

DRUGS (2)
  1. GLEEVEC (IMATINIB) UNKNOWN [Suspect]
     Indication: LEUKAEMIA
     Dosage: UNK UKN, UNK
  2. THYROID THERAPY (NO INGREDIENTS/SUBSTANCES) [Concomitant]

REACTIONS (11)
  - Pneumonia [None]
  - Skin ulcer [None]
  - Drug intolerance [None]
  - Burning sensation [None]
  - Malaise [None]
  - Vomiting [None]
  - Abdominal pain [None]
  - Nausea [None]
  - Haemorrhage [None]
  - Pruritus [None]
  - Purulence [None]
